FAERS Safety Report 17465027 (Version 5)
Quarter: 2020Q2

REPORT INFORMATION
  Report Type: Report from Study
  Country: IT (occurrence: IT)
  Receive Date: 20200227
  Receipt Date: 20200630
  Transmission Date: 20200713
  Serious: No
  Sender: FDA-Public Use
  Company Number: IT-ROCHE-2553824

PATIENT
  Age: 65 Year
  Sex: Male

DRUGS (1)
  1. OBINUTUZUMAB. [Suspect]
     Active Substance: OBINUTUZUMAB
     Indication: B-CELL LYMPHOMA
     Dosage: DAY 1, 8, 15 OF CYCLE 1 AND DAY 1 OF CYCLES 2-6 OR 2-8 (AS PER PROTOCOL)
     Route: 042
     Dates: start: 20190717

REACTIONS (2)
  - Off label use [Unknown]
  - Pyrexia [Recovered/Resolved]

NARRATIVE: CASE EVENT DATE: 20200125
